FAERS Safety Report 7898752-1 (Version None)
Quarter: 2011Q4

REPORT INFORMATION
  Report Type: 
  Country: None (occurrence: None)
  Receive Date: 20111107
  Receipt Date: 20111025
  Transmission Date: 20120403
  Serious: Yes (Hospitalization, Other)
  Sender: FDA-Public Use
  Company Number: NL-MYLANLABS-2011S1022089

PATIENT
  Age: 59 Year
  Sex: Female
  Weight: 59 kg

DRUGS (2)
  1. PERSANTIN [Suspect]
     Indication: PRODUCT USED FOR UNKNOWN INDICATION
     Dosage: EERSTE WEEK 1 X DAAGS DAARNA 2X DAAGS
     Route: 048
     Dates: start: 20110603, end: 20110617
  2. SIMVASTATIN [Suspect]
     Indication: HYPERCHOLESTEROLAEMIA
     Dosage: 1 MAAL DAAGS
     Route: 048
     Dates: start: 20110530, end: 20110614

REACTIONS (5)
  - DIVERTICULITIS [None]
  - ABDOMINAL PAIN UPPER [None]
  - HEPATITIS [None]
  - CHEST DISCOMFORT [None]
  - ABDOMINAL DISCOMFORT [None]
